FAERS Safety Report 5227209-1 (Version None)
Quarter: 2007Q1

REPORT INFORMATION
  Report Type: 
  Country: None (occurrence: None)
  Receive Date: 20070202
  Receipt Date: 20070130
  Transmission Date: 20070707
  Serious: Yes (Life-Threatening)
  Sender: FDA-Public Use
  Company Number: JP-JPN-A200604951

PATIENT
  Age: 77 Year
  Sex: Female

DRUGS (3)
  1. PAXIL [Suspect]
     Indication: DEPRESSION
     Route: 048
  2. ALDACTONE [Concomitant]
     Indication: HEPATIC CIRRHOSIS
     Dosage: 40MG PER DAY
     Dates: start: 20060817
  3. FUROSEMIDE [Concomitant]
     Indication: HEPATIC CIRRHOSIS
     Dosage: 400MG PER DAY
     Route: 048
     Dates: start: 20060817

REACTIONS (3)
  - DEPRESSED LEVEL OF CONSCIOUSNESS [None]
  - HYPONATRAEMIA [None]
  - VOMITING [None]
